FAERS Safety Report 10080526 (Version 2)
Quarter: 2014Q2

REPORT INFORMATION
  Report Type: Spontaneous
  Country: US (occurrence: US)
  Receive Date: 20140416
  Receipt Date: 20140428
  Transmission Date: 20141212
  Serious: No
  Sender: FDA-Public Use
  Company Number: US-AMGEN-USASP2014026139

PATIENT
  Age: 86 Year
  Sex: Male

DRUGS (18)
  1. PROLIA [Suspect]
     Indication: PRODUCT USED FOR UNKNOWN INDICATION
     Dosage: UNK
     Route: 065
  2. EPOGEN [Concomitant]
     Indication: PRODUCT USED FOR UNKNOWN INDICATION
     Route: 065
  3. ZEMPLAR [Concomitant]
  4. VENOFER [Concomitant]
  5. HEPARIN [Concomitant]
  6. ASPIRIN [Concomitant]
  7. CALCIUM ACETATE [Concomitant]
  8. COMBIGAN [Concomitant]
  9. EMLA                               /00675501/ [Concomitant]
  10. PROBIOTIC                          /06395501/ [Concomitant]
  11. LEXAPRO                            /01588501/ [Concomitant]
  12. LOMOTIL                            /00034001/ [Concomitant]
  13. NEPHROCAPS                         /01801401/ [Concomitant]
  14. RENVELA [Concomitant]
  15. TEMAZEPAM [Concomitant]
  16. TYLENOL                            /00020001/ [Concomitant]
  17. VITAMIN D2 OLEOSA [Concomitant]
     Dosage: 2000 IU, UNK
  18. ZEGERID                            /00661201/ [Concomitant]

REACTIONS (2)
  - Blood parathyroid hormone abnormal [Unknown]
  - Blood calcium abnormal [Unknown]
